FAERS Safety Report 10217831 (Version 1)
Quarter: 2014Q2

REPORT INFORMATION
  Report Type: Spontaneous
  Country: US (occurrence: US)
  Receive Date: 20140604
  Receipt Date: 20140604
  Transmission Date: 20141212
  Serious: Yes (Disabling)
  Sender: FDA-Public Use
  Company Number: US-BRISTOL-MYERS SQUIBB COMPANY-20875001

PATIENT
  Age: 71 Year
  Sex: Male

DRUGS (5)
  1. BYETTA [Suspect]
     Indication: DIABETES MELLITUS
  2. METOPROLOL [Concomitant]
  3. BENICAR [Concomitant]
  4. CLONIDINE [Concomitant]
  5. NIFEDICAL [Concomitant]

REACTIONS (2)
  - Balance disorder [Unknown]
  - Anxiety [Unknown]
